FAERS Safety Report 19513652 (Version 4)
Quarter: 2022Q4

REPORT INFORMATION
  Report Type: Report from Study
  Country: ES (occurrence: None)
  Receive Date: 20210710
  Receipt Date: 20221128
  Transmission Date: 20230112
  Serious: Yes (Hospitalization)
  Sender: FDA-Public Use
  Company Number: ES-ROCHE-2864649

PATIENT
  Age: 64 Year
  Sex: Female
  Weight: 80.5 kg

DRUGS (5)
  1. ATEZOLIZUMAB [Suspect]
     Active Substance: ATEZOLIZUMAB
     Indication: Ovarian cancer recurrent
     Dosage: ON 22/JUN/2021, SHE RECEIVED THE MOST RECENT DOSE OF BLINDED ATEZOLIZUMAB PRIOR TO ONSET OF SAE.
     Route: 042
     Dates: start: 20210608
  2. BEVACIZUMAB [Suspect]
     Active Substance: BEVACIZUMAB
     Indication: Ovarian cancer recurrent
     Dosage: ON 22/JUN/2021, SHE RECEIVED THE MOST RECENT DOSE OF BEVACIZUMAB PRIOR TO ONSET OF SAE.
     Route: 042
     Dates: start: 20210608
  3. PACLITAXEL [Suspect]
     Active Substance: PACLITAXEL
     Indication: Ovarian cancer recurrent
     Dosage: ON 28/JUN/2021, SHE RECEIVED THE MOST RECENT DOSE OF PACLITAXEL PRIOR TO ONSET OF SAE.
     Route: 042
     Dates: start: 20210608
  4. HUMAN RED BLOOD CELL [Concomitant]
     Active Substance: HUMAN RED BLOOD CELL
     Dosage: 2 CONCENTRATED OF RED CELLS
  5. CEFTAZIDIME [Concomitant]
     Active Substance: CEFTAZIDIME
     Route: 042
     Dates: start: 20210709

REACTIONS (1)
  - Tumour ulceration [Recovered/Resolved]

NARRATIVE: CASE EVENT DATE: 20210705
